FAERS Safety Report 4371014-5 (Version None)
Quarter: 2004Q2

REPORT INFORMATION
  Report Type: 
  Country: None (occurrence: None)
  Receive Date: 20040601
  Receipt Date: 20040526
  Transmission Date: 20050107
  Serious: Yes (Other)
  Sender: FDA-Public Use
  Company Number: 200411085GDS

PATIENT
  Age: 66 Year
  Sex: Male
  Weight: 63 kg

DRUGS (18)
  1. AVELOX [Suspect]
     Indication: PNEUMONIA
     Dosage: 400 MG, TOTAL DAILY, ORAL
     Route: 048
     Dates: start: 20031126, end: 20031130
  2. AVELOX [Suspect]
     Indication: SINUSITIS
     Dosage: 400 MG, TOTAL DAILY, ORAL
     Route: 048
     Dates: start: 20031126, end: 20031130
  3. AVELOX [Suspect]
     Indication: PNEUMONIA
     Dosage: 400 MG, TOTAL DAILY, ORAL
     Route: 048
     Dates: start: 20031127
  4. AVELOX [Suspect]
     Indication: SINUSITIS
     Dosage: 400 MG, TOTAL DAILY, ORAL
     Route: 048
     Dates: start: 20031127
  5. AVELOX [Suspect]
     Indication: PNEUMONIA
     Dosage: 400 MG, TOTAL DAILY, ORAL
     Route: 048
     Dates: start: 20031128
  6. AVELOX [Suspect]
     Indication: SINUSITIS
     Dosage: 400 MG, TOTAL DAILY, ORAL
     Route: 048
     Dates: start: 20031128
  7. AVELOX [Suspect]
     Indication: PNEUMONIA
     Dosage: 400 MG, TOTAL DAILY, ORAL
     Route: 048
     Dates: start: 20031129
  8. AVELOX [Suspect]
     Indication: SINUSITIS
     Dosage: 400 MG, TOTAL DAILY, ORAL
     Route: 048
     Dates: start: 20031129
  9. AVELOX [Suspect]
     Indication: PNEUMONIA
     Dosage: 400 MG, TOTAL DAILY, ORAL
     Route: 048
     Dates: start: 20031130
  10. AVELOX [Suspect]
     Indication: SINUSITIS
     Dosage: 400 MG, TOTAL DAILY, ORAL
     Route: 048
     Dates: start: 20031130
  11. THEOPHYLLINE [Suspect]
     Dosage: SEE IMAGE
     Route: 048
     Dates: start: 20030509
  12. THEOPHYLLINE [Suspect]
     Dosage: SEE IMAGE
     Route: 048
     Dates: start: 20030514
  13. THEOPHYLLINE [Suspect]
     Dosage: SEE IMAGE
     Route: 048
     Dates: start: 20031002
  14. THEOPHYLLINE [Suspect]
     Dosage: SEE IMAGE
     Route: 048
     Dates: start: 20031128
  15. THEOPHYLLINE [Suspect]
     Dosage: SEE IMAGE
     Route: 048
     Dates: start: 20031201
  16. MEDROL [Concomitant]
  17. ZURCALE [Concomitant]
  18. XANTHIUM [Concomitant]

REACTIONS (3)
  - DRUG INTERACTION [None]
  - DRUG LEVEL INCREASED [None]
  - TENDON DISORDER [None]
